FAERS Safety Report 7874548-1 (Version None)
Quarter: 2011Q4

REPORT INFORMATION
  Report Type: 
  Country: None (occurrence: None)
  Receive Date: 20111031
  Receipt Date: 20111019
  Transmission Date: 20120403
  Serious: Yes (Other)
  Sender: FDA-Public Use
  Company Number: US-BRISTOL-MYERS SQUIBB COMPANY-16176448

PATIENT

DRUGS (1)
  1. ONGLYZA [Suspect]
     Dosage: 2.5MG INCREASED TO 5MG ON 13OCT2011
     Route: 048

REACTIONS (1)
  - PANCREATIC ENZYMES INCREASED [None]
